FAERS Safety Report 20747330 (Version 2)
Quarter: 2024Q3

REPORT INFORMATION
  Report Type: Spontaneous
  Country: US (occurrence: US)
  Receive Date: 20220425
  Receipt Date: 20240807
  Transmission Date: 20241017
  Serious: No
  Sender: SANOFI AVENTIS
  Company Number: US-SA-SAC20220420000519

PATIENT
  Age: 8 Year
  Sex: Male
  Weight: 30.839 kg

DRUGS (9)
  1. LUMIZYME [Suspect]
     Active Substance: ALGLUCOSIDASE ALFA
     Indication: Glycogen storage disease type II
     Dosage: 1500 MG, QW
     Route: 042
     Dates: start: 20210114
  2. ROCEPHIN [Concomitant]
     Active Substance: CEFTRIAXONE SODIUM
     Dosage: UNK
  3. HEPARIN [Concomitant]
     Active Substance: HEPARIN SODIUM
     Dosage: UNK
  4. STERILE WATER [Concomitant]
     Active Substance: WATER
     Dosage: UNK
  5. EPINEPHRINE [Concomitant]
     Active Substance: EPINEPHRINE
     Dosage: UNK
  6. CLARITIN [Concomitant]
     Active Substance: LORATADINE
     Dosage: UNK (CO Q-10)
  7. TOBRAMYCIN SULFATE [Concomitant]
     Active Substance: TOBRAMYCIN SULFATE
     Dosage: UNK
  8. VANCOMYCIN [Concomitant]
     Active Substance: VANCOMYCIN
     Dosage: UNK
  9. SODIUM CHLORIDE [Concomitant]
     Active Substance: SODIUM CHLORIDE
     Dosage: UNK

REACTIONS (3)
  - Dyspnoea [Unknown]
  - Inappropriate schedule of product administration [Unknown]
  - Incorrect dose administered [Unknown]

NARRATIVE: CASE EVENT DATE: 20210114
